FAERS Safety Report 4288001-8 (Version None)
Quarter: 2004Q1

REPORT INFORMATION
  Report Type: 
  Country: None (occurrence: None)
  Receive Date: 20040209
  Receipt Date: 20031113
  Transmission Date: 20041129
  Serious: No
  Sender: FDA-Public Use
  Company Number: US-GLAXOSMITHKLINE-A0439649A

PATIENT
  Sex: Female

DRUGS (2)
  1. PAXIL [Suspect]
     Indication: DEPRESSION
     Dosage: 12.5MG PER DAY
     Route: 048
  2. AMBIEN [Concomitant]

REACTIONS (4)
  - DIZZINESS [None]
  - FACE OEDEMA [None]
  - INSOMNIA [None]
  - NERVOUSNESS [None]
